FAERS Safety Report 9262550 (Version 4)
Quarter: 2013Q2

REPORT INFORMATION
  Report Type: Report from Study
  Country: JP (occurrence: JP)
  Receive Date: 20130430
  Receipt Date: 20130619
  Transmission Date: 20140414
  Serious: Yes (Death)
  Sender: FDA-Public Use
  Company Number: JP-OTSUKA-JP-2013-11146

PATIENT
  Age: 84 Year
  Sex: Female

DRUGS (4)
  1. SAMSCA [Suspect]
     Indication: FLUID RETENTION
     Dosage: 7.5 MG MILLIGRAM(S), QAM
     Route: 048
     Dates: start: 20130223, end: 20130228
  2. DIART [Concomitant]
     Indication: CARDIAC FAILURE
     Dosage: 30 MG MILLIGRAM(S), DAILY DOSE
     Route: 048
  3. ALDACTONE A [Concomitant]
     Indication: CARDIAC FAILURE
     Dosage: 25 MG MILLIGRAM(S), DAILY DOSE
     Route: 048
  4. RENIVACE [Concomitant]
     Indication: CARDIAC FAILURE
     Dosage: 5 MG MILLIGRAM(S), DAILY DOSE
     Route: 048

REACTIONS (1)
  - Ventricular extrasystoles [Fatal]
